FAERS Safety Report 26031723 (Version 1)
Quarter: 2025Q4

REPORT INFORMATION
  Report Type: Spontaneous
  Country: CN (occurrence: None)
  Receive Date: 20251112
  Receipt Date: 20251112
  Transmission Date: 20260117
  Serious: Yes (Hospitalization)
  Sender: INFORLIFE
  Company Number: CN-INFO-20250278

PATIENT
  Age: 83 Year
  Sex: Male

DRUGS (2)
  1. FLUCONAZOLE [Suspect]
     Active Substance: FLUCONAZOLE
     Indication: Candida infection
     Dosage: AN INITIAL DOSE OF 600 MG OF FLUCONAZOLE, FOLLOWED BY A MAINTENANCE DOSE OF 400 MG
  2. FLUCONAZOLE [Suspect]
     Active Substance: FLUCONAZOLE
     Indication: Candida infection
     Dosage: AN INITIAL DOSE OF 600 MG OF FLUCONAZOLE, FOLLOWED BY A MAINTENANCE DOSE OF 400 MG

REACTIONS (2)
  - Hyperkalaemia [Recovered/Resolved]
  - Electrocardiogram QT prolonged [Unknown]
